FAERS Safety Report 8694384 (Version 3)
Quarter: 2016Q4

REPORT INFORMATION
  Report Type: Spontaneous
  Country: FR (occurrence: FR)
  Receive Date: 20120731
  Receipt Date: 20161227
  Transmission Date: 20170207
  Serious: Yes (Congenital Anomaly)
  Sender: FDA-Public Use
  Company Number: FR-ROCHE-1091177

PATIENT
  Age: 0 Day
  Sex: Female
  Weight: 2.36 kg

DRUGS (2)
  1. IMUREL [Suspect]
     Active Substance: AZATHIOPRINE SODIUM
     Indication: PRODUCT USED FOR UNKNOWN INDICATION
     Route: 064
     Dates: start: 20110907, end: 20120413
  2. CELLCEPT [Suspect]
     Active Substance: MYCOPHENOLATE MOFETIL\MYCOPHENOLATE MOFETIL HYDROCHLORIDE
     Indication: RENAL FAILURE
     Route: 064
     Dates: end: 20110715

REACTIONS (7)
  - Microtia [Not Recovered/Not Resolved]
  - Atrophy [Not Recovered/Not Resolved]
  - Congenital hand malformation [Not Recovered/Not Resolved]
  - Coloboma [Not Recovered/Not Resolved]
  - Microphthalmos [Not Recovered/Not Resolved]
  - Maternal exposure timing unspecified [Unknown]
  - External auditory canal atresia [Not Recovered/Not Resolved]

NARRATIVE: CASE EVENT DATE: 20120413
